FAERS Safety Report 7263282-7 (Version None)
Quarter: 2011Q1

REPORT INFORMATION
  Report Type: 
  Country: None (occurrence: None)
  Receive Date: 20110130
  Receipt Date: 20101116
  Transmission Date: 20110831
  Serious: No
  Sender: FDA-Public Use
  Company Number: US-ABBOTT-10P-163-0673166-00

PATIENT
  Sex: Female
  Weight: 54.934 kg

DRUGS (3)
  1. M.V.I. [Concomitant]
     Indication: PRODUCT USED FOR UNKNOWN INDICATION
  2. HUMIRA [Suspect]
     Indication: CROHN'S DISEASE
     Dates: start: 20070501
  3. ORTHOTRICYCLIC [Concomitant]
     Indication: CONTRACEPTION

REACTIONS (3)
  - INJECTION SITE PAIN [None]
  - BREAST NEOPLASM [None]
  - HEPATIC ENZYME INCREASED [None]
